FAERS Safety Report 20303769 (Version 1)
Quarter: 2022Q1

REPORT INFORMATION
  Report Type: Spontaneous
  Country: US (occurrence: None)
  Receive Date: 20220105
  Receipt Date: 20220105
  Transmission Date: 20220423
  Serious: Yes (Hospitalization)
  Sender: FDA-Public Use
  Company Number: None

PATIENT
  Age: 61 Year
  Sex: Male

DRUGS (1)
  1. NUCALA [Suspect]
     Active Substance: MEPOLIZUMAB
     Dosage: 100MG OTHER SC
     Route: 058
     Dates: start: 202002

REACTIONS (2)
  - COVID-19 [None]
  - Intentional dose omission [None]

NARRATIVE: CASE EVENT DATE: 20211110
